FAERS Safety Report 10460419 (Version 5)
Quarter: 2015Q3

REPORT INFORMATION
  Report Type: Report from Study
  Country: US (occurrence: US)
  Receive Date: 20140917
  Receipt Date: 20150903
  Transmission Date: 20151125
  Serious: Yes (Other)
  Sender: FDA-Public Use
  Company Number: US-SA-2014SA048252

PATIENT
  Age: 53 Year
  Sex: Female

DRUGS (2)
  1. AUBAGIO [Suspect]
     Active Substance: TERIFLUNOMIDE
     Indication: MULTIPLE SCLEROSIS
     Route: 048
     Dates: start: 20140325
  2. AUBAGIO [Suspect]
     Active Substance: TERIFLUNOMIDE
     Indication: MULTIPLE SCLEROSIS
     Route: 048

REACTIONS (17)
  - Depressed mood [Recovering/Resolving]
  - Abdominal discomfort [Not Recovered/Not Resolved]
  - Diarrhoea [Unknown]
  - Stress [Unknown]
  - Nausea [Recovering/Resolving]
  - Suicidal ideation [Unknown]
  - Limb discomfort [Unknown]
  - Temperature intolerance [Unknown]
  - Vitamin C decreased [Unknown]
  - Open fracture [Unknown]
  - Vomiting [Recovering/Resolving]
  - Self-injurious ideation [Recovering/Resolving]
  - Depression [Unknown]
  - Crying [Recovering/Resolving]
  - Peripheral swelling [Unknown]
  - Migraine [Unknown]
  - Eye disorder [Unknown]

NARRATIVE: CASE EVENT DATE: 2015
